FAERS Safety Report 15646012 (Version 1)
Quarter: 2018Q4

REPORT INFORMATION
  Report Type: Spontaneous
  Country: US (occurrence: US)
  Receive Date: 20181121
  Receipt Date: 20181121
  Transmission Date: 20190205
  Serious: Yes (Other)
  Sender: FDA-Public Use
  Company Number: US-BAXTER-2018BAX028153

PATIENT
  Age: 16 Year
  Sex: Female

DRUGS (10)
  1. NOREPINEPHRINE BITARTRATE INJECTION, USP [Suspect]
     Active Substance: NOREPINEPHRINE BITARTRATE
     Indication: HYPOTENSION
     Dosage: HIGH-DOSE NOREPINEPHRINE INFUSION
     Route: 041
  2. PHENYLEPHRINE [Suspect]
     Active Substance: PHENYLEPHRINE\PHENYLEPHRINE HYDROCHLORIDE
     Indication: HYPOTENSION
     Dosage: POST-RESUSCITATION
     Route: 065
  3. EPINEPHRINE. [Concomitant]
     Active Substance: EPINEPHRINE
     Indication: HYPOTENSION
     Route: 042
  4. HYDROXYCHLOROQUINE [Concomitant]
     Active Substance: HYDROXYCHLOROQUINE
     Indication: SUICIDE ATTEMPT
     Dosage: OVERDOSED ON 45 TABLETS OF 200MG (A TOTAL OF 9 G)
     Route: 048
  5. PHENOBARBITAL. [Concomitant]
     Active Substance: PHENOBARBITAL
     Indication: TOXICITY TO VARIOUS AGENTS
     Route: 041
  6. SODIUM BICARBONATE. [Concomitant]
     Active Substance: SODIUM BICARBONATE
     Indication: TACHYCARDIA
     Route: 042
  7. DIAZEPAM. [Concomitant]
     Active Substance: DIAZEPAM
     Indication: TOXICITY TO VARIOUS AGENTS
     Route: 040
  8. DIAZEPAM. [Concomitant]
     Active Substance: DIAZEPAM
     Route: 041
  9. FAT EMULSION NOS [Concomitant]
     Active Substance: EGG PHOSPHOLIPIDS\SAFFLOWER OIL\SOYBEAN OIL
     Indication: HYPOTENSION
     Dosage: 6 HOUR AFTER OVERDOSE
     Route: 042
  10. EPINEPHRINE. [Concomitant]
     Active Substance: EPINEPHRINE
     Dosage: HIGH DOSE EPINEPHRINE INFUSION
     Route: 041

REACTIONS (1)
  - Drug ineffective [Unknown]
